FAERS Safety Report 4455702-8 (Version None)
Quarter: 2004Q3

REPORT INFORMATION
  Report Type: 
  Country: None (occurrence: None)
  Receive Date: 20040917
  Receipt Date: 20040827
  Transmission Date: 20050211
  Serious: Yes (Hospitalization)
  Sender: FDA-Public Use
  Company Number: USA040876766

PATIENT
  Age: 65 Year
  Sex: Female

DRUGS (2)
  1. FORTEO [Suspect]
     Indication: OSTEOPOROSIS
     Dates: start: 20030101, end: 20040101
  2. CALCIUM [Concomitant]

REACTIONS (6)
  - CALCINOSIS [None]
  - CONDITION AGGRAVATED [None]
  - DIABETES MELLITUS [None]
  - OPEN WOUND [None]
  - TOE AMPUTATION [None]
  - WOUND SECRETION [None]
